FAERS Safety Report 9269149 (Version 1)
Quarter: 2013Q2

REPORT INFORMATION
  Report Type: Report from Study
  Country: DE (occurrence: DE)
  Receive Date: 20130503
  Receipt Date: 20130503
  Transmission Date: 20140414
  Serious: Yes (Disabling, Other)
  Sender: FDA-Public Use
  Company Number: DE-BAYER-2013-051881

PATIENT
  Age: 54 Year
  Sex: Female
  Weight: 75 kg

DRUGS (10)
  1. BETAFERON [Suspect]
     Dosage: 8000000 IU, QOD
     Route: 058
     Dates: start: 2005
  2. CARBAMAZEPIN [Concomitant]
     Indication: TRIGEMINAL NEURALGIA
     Dosage: 800 MG, QD
     Route: 048
     Dates: start: 2009
  3. BACLOFEN [Concomitant]
     Indication: TRIGEMINAL NEURALGIA
     Dosage: 25 MG, QD
     Route: 048
     Dates: start: 2009
  4. BACLOFEN [Concomitant]
     Indication: MUSCLE SPASTICITY
  5. BACLOFEN [Concomitant]
     Indication: MULTIPLE SCLEROSIS
  6. CYMBALTA [Concomitant]
     Indication: FATIGUE
     Dosage: UNK
     Route: 048
     Dates: start: 201202
  7. CYMBALTA [Concomitant]
     Indication: DEPRESSION
  8. BISOPROLOL [Concomitant]
     Indication: HYPERTENSION
     Dosage: 5 MG, QD
     Route: 048
     Dates: start: 201205
  9. BIPRETERAX [Concomitant]
     Indication: HYPERTENSION
     Dosage: 1.25 MG, QD
     Route: 048
     Dates: start: 201205
  10. DICLOFENAC [Concomitant]
     Indication: HYPERTENSION

REACTIONS (4)
  - Hypertensive crisis [None]
  - Fall [Recovered/Resolved]
  - Hand fracture [Recovered/Resolved]
  - Trigeminal neuralgia [Recovered/Resolved]
